FAERS Safety Report 9663465 (Version 2)
Quarter: 2013Q4

REPORT INFORMATION
  Report Type: Report from Study
  Country: US (occurrence: US)
  Receive Date: 20131101
  Receipt Date: 20131101
  Transmission Date: 20140711
  Serious: Yes (Hospitalization)
  Sender: FDA-Public Use
  Company Number: US-MERCK-1208USA010686

PATIENT
  Age: 39 Year
  Sex: Female

DRUGS (1)
  1. MK-0683 [Suspect]
     Indication: ACUTE MYELOID LEUKAEMIA
     Dosage: 500 MG X 3 DAYS
     Route: 048

REACTIONS (1)
  - Deep vein thrombosis [Unknown]
